FAERS Safety Report 9681026 (Version 1)
Quarter: 2013Q4

REPORT INFORMATION
  Report Type: Spontaneous
  Country: BR (occurrence: BR)
  Receive Date: 20131111
  Receipt Date: 20131111
  Transmission Date: 20140711
  Serious: Yes (Other)
  Sender: FDA-Public Use
  Company Number: BR-SA-2013SA112895

PATIENT
  Age: 58 Year
  Sex: Female
  Weight: 59 kg

DRUGS (3)
  1. ARAVA [Suspect]
     Indication: RHEUMATOID ARTHRITIS
     Route: 048
     Dates: start: 20130818, end: 20130930
  2. METHOTREXATE [Concomitant]
     Indication: ARTHRITIS
     Dosage: PER WEEK DURING ONE DAY
     Route: 048
     Dates: start: 2008
  3. CORTISONE [Concomitant]
     Indication: ARTHRITIS
     Dosage: 2 MG IN MORNING AND 0.5 MG AT NIGHT.
     Route: 048
     Dates: start: 1993

REACTIONS (10)
  - Aphagia [Not Recovered/Not Resolved]
  - Dermatitis bullous [Unknown]
  - Rash [Unknown]
  - Blister [Recovering/Resolving]
  - Lip blister [Unknown]
  - Rash [Recovering/Resolving]
  - Pain [Unknown]
  - Mental disorder [Unknown]
  - Lip pain [Unknown]
  - Mucosal erosion [Not Recovered/Not Resolved]
